FAERS Safety Report 10697331 (Version 1)
Quarter: 2015Q1

REPORT INFORMATION
  Report Type: Spontaneous
  Country: US (occurrence: None)
  Receive Date: 20150107
  Receipt Date: 20150107
  Transmission Date: 20150721
  Serious: Yes (Other)
  Sender: FDA-Public Use
  Company Number: None

PATIENT
  Age: 46 Year
  Sex: Female

DRUGS (15)
  1. DEXEDRINE [Concomitant]
     Active Substance: DEXTROAMPHETAMINE SULFATE
  2. PROZAR [Concomitant]
  3. AMPYRA [Concomitant]
     Active Substance: DALFAMPRIDINE
  4. BACTERIM [Concomitant]
  5. AMPYRA [Suspect]
     Active Substance: DALFAMPRIDINE
     Indication: MULTIPLE SCLEROSIS
     Route: 048
     Dates: start: 201006
  6. MODAFINIL. [Concomitant]
     Active Substance: MODAFINIL
  7. METHENAMINE [Concomitant]
     Active Substance: METHENAMINE
  8. LSINOPRIL [Concomitant]
  9. ZANAFLEX [Concomitant]
     Active Substance: TIZANIDINE HYDROCHLORIDE
  10. VITAMIN D [Concomitant]
     Active Substance: CHOLECALCIFEROL
  11. FLONASE [Concomitant]
     Active Substance: FLUTICASONE PROPIONATE
  12. RITUXIMAB [Concomitant]
     Active Substance: RITUXIMAB
  13. DEPROVERA [Concomitant]
  14. CALCIUM [Concomitant]
     Active Substance: CALCIUM
  15. VITAMIN B12 [Concomitant]
     Active Substance: CYANOCOBALAMIN

REACTIONS (1)
  - Urinary tract infection [None]

NARRATIVE: CASE EVENT DATE: 20141215
